FAERS Safety Report 7210144-7 (Version None)
Quarter: 2011Q1

REPORT INFORMATION
  Report Type: 
  Country: None (occurrence: None)
  Receive Date: 20110105
  Receipt Date: 20101227
  Transmission Date: 20110831
  Serious: Yes (Hospitalization, Other)
  Sender: FDA-Public Use
  Company Number: US-ELI_LILLY_AND_COMPANY-US200910006925

PATIENT
  Sex: Female

DRUGS (31)
  1. ASCORBIC ACID [Concomitant]
  2. METOLAZONE [Concomitant]
  3. VERAPAMIL [Concomitant]
  4. ALBUTEROL SULFATE [Concomitant]
     Dosage: UNK, UNKNOWN
     Route: 055
  5. FORTEO [Suspect]
     Indication: OSTEOPOROSIS
     Dosage: 20 UG, DAILY (1/D)
     Route: 058
     Dates: start: 20090816, end: 20101201
  6. POTASSIUM [Concomitant]
  7. ABELCET [Concomitant]
     Dosage: UNK, UNKNOWN
     Route: 065
  8. SPORANOX [Concomitant]
     Dosage: UNK, UNKNOWN
     Route: 065
  9. MAGNESIUM [Concomitant]
     Dosage: UNK, UNKNOWN
     Route: 065
  10. SPIRIVA [Concomitant]
     Dosage: UNK, UNKNOWN
     Route: 065
  11. ZAPONEX [Concomitant]
  12. IRON [Concomitant]
  13. MUCINEX [Concomitant]
  14. ASPIRIN [Concomitant]
  15. PROGRAF [Concomitant]
     Dosage: UNK, UNKNOWN
     Route: 065
  16. BACTRIM [Concomitant]
     Dosage: UNK, UNKNOWN
     Route: 065
  17. EPIVIR [Concomitant]
     Dosage: UNK, UNKNOWN
     Route: 065
  18. PREDNISONE [Concomitant]
  19. OSCAL 500-D [Concomitant]
  20. AZITHROMYCIN [Concomitant]
     Dosage: UNK, UNKNOWN
     Route: 065
  21. FOLIC ACID [Concomitant]
     Dosage: UNK, UNKNOWN
     Route: 065
  22. PERCOCET [Concomitant]
     Dosage: UNK, UNKNOWN
     Route: 065
  23. CULTURELLE [Concomitant]
     Dosage: UNK, UNKNOWN
     Route: 065
  24. ADVAIR [Concomitant]
  25. IPRATROPIUM BROMIDE [Concomitant]
  26. COUMADIN [Concomitant]
  27. LOPRESSOR [Concomitant]
     Dosage: UNK, UNKNOWN
     Route: 065
  28. VITAMIN D [Concomitant]
  29. LORATADINE [Concomitant]
  30. PRILOSEC [Concomitant]
     Dosage: UNK, UNKNOWN
     Route: 065
  31. MULTI-VITAMIN [Concomitant]
     Dosage: UNK, UNKNOWN
     Route: 065

REACTIONS (2)
  - CHRONIC OBSTRUCTIVE PULMONARY DISEASE [None]
  - PNEUMONIA [None]
